FAERS Safety Report 8501067-1 (Version None)
Quarter: 2012Q2

REPORT INFORMATION
  Report Type: 
  Country: None (occurrence: None)
  Receive Date: 20120405
  Receipt Date: 20110322
  Transmission Date: 20120825
  Serious: Yes (Other)
  Sender: FDA-Public Use
  Company Number: PHHY2011US17197

PATIENT
  Age: 60 Year
  Sex: Female

DRUGS (5)
  1. IRON (IRON) [Concomitant]
  2. VITAMIN TAB [Concomitant]
  3. RECLAST [Suspect]
     Indication: OSTEOPOROSIS
     Dosage: 5 MG, ONCE A YEAR, INTRAVENOUS
     Route: 042
     Dates: start: 20110225
  4. CALCIUM CARBONATE [Concomitant]
  5. ZINC (ZINC) [Concomitant]

REACTIONS (5)
  - CHILLS [None]
  - DIZZINESS [None]
  - PYREXIA [None]
  - EYE INFLAMMATION [None]
  - INFLUENZA LIKE ILLNESS [None]
